FAERS Safety Report 14133637 (Version 1)
Quarter: 2017Q4

REPORT INFORMATION
  Report Type: Report from Study
  Country: CN (occurrence: CN)
  Receive Date: 20171027
  Receipt Date: 20171027
  Transmission Date: 20180321
  Serious: Yes (Other)
  Sender: FDA-Public Use
  Company Number: CN-ROCHE-2013842

PATIENT

DRUGS (5)
  1. ALTEPLASE. [Suspect]
     Active Substance: ALTEPLASE
     Indication: ACUTE MYOCARDIAL INFARCTION
     Route: 042
  2. ALTEPLASE. [Suspect]
     Active Substance: ALTEPLASE
     Dosage: WITHIN 30 MIN (MAXIMUM DOSE {/= 50 MG)
     Route: 041
  3. ALTEPLASE. [Suspect]
     Active Substance: ALTEPLASE
     Dosage: OR 60 MIN (MAXIMUM DOSE {/= 35 MG)
     Route: 041
  4. PRO-UROKINASE [Suspect]
     Active Substance: SARUPLASE
     Dosage: THE REMAINING 30 MG TO BE DISSOLVED IN 90 ML OF SALINE FOR INFUSION DRIP, TO BE COMPLETED WITHIN 30
     Route: 041
  5. PRO-UROKINASE [Suspect]
     Active Substance: SARUPLASE
     Indication: ACUTE MYOCARDIAL INFARCTION
     Route: 042

REACTIONS (8)
  - Gastrointestinal haemorrhage [Unknown]
  - Haemorrhage intracranial [Unknown]
  - Coronary artery occlusion [Unknown]
  - Myocardial infarction [Unknown]
  - Haemorrhage subcutaneous [Unknown]
  - Postinfarction angina [Unknown]
  - Mucosal haemorrhage [Unknown]
  - Gingival bleeding [Unknown]
